FAERS Safety Report 7685795-6 (Version None)
Quarter: 2011Q3

REPORT INFORMATION
  Report Type: 
  Country: None (occurrence: None)
  Receive Date: 20110815
  Receipt Date: 20110815
  Transmission Date: 20111222
  Serious: Yes (Life-Threatening)
  Sender: FDA-Public Use
  Company Number: None

PATIENT
  Age: 31 Year
  Sex: Male
  Weight: 99.79 kg

DRUGS (1)
  1. SEROQUEL [Suspect]
     Indication: INSOMNIA
     Dosage: 150 MG
     Dates: start: 20110710, end: 20110715

REACTIONS (4)
  - NIGHTMARE [None]
  - WITHDRAWAL SYNDROME [None]
  - PAIN IN EXTREMITY [None]
  - VISUAL IMPAIRMENT [None]
